FAERS Safety Report 10726456 (Version 1)
Quarter: 2015Q1

REPORT INFORMATION
  Report Type: Spontaneous
  Country: US (occurrence: US)
  Receive Date: 20150121
  Receipt Date: 20150121
  Transmission Date: 20150721
  Serious: Yes (Other)
  Sender: FDA-Public Use
  Company Number: US-009507513-1501USA005985

PATIENT

DRUGS (2)
  1. AVASTIN [Concomitant]
     Active Substance: BEVACIZUMAB
     Dosage: UNK
  2. TEMODAR [Suspect]
     Active Substance: TEMOZOLOMIDE
     Dosage: UNK

REACTIONS (6)
  - Glioblastoma [Unknown]
  - Urinary incontinence [Unknown]
  - Seizure [Unknown]
  - Pollakiuria [Unknown]
  - Gait disturbance [Unknown]
  - Malnutrition [Unknown]
